FAERS Safety Report 14654160 (Version 1)
Quarter: 2018Q1

REPORT INFORMATION
  Report Type: Report from Study
  Country: BR (occurrence: BR)
  Receive Date: 20180319
  Receipt Date: 20180319
  Transmission Date: 20180509
  Serious: Yes (Other)
  Sender: FDA-Public Use
  Company Number: PHHY2018BR045548

PATIENT
  Sex: Male
  Weight: 45 kg

DRUGS (1)
  1. EXJADE [Suspect]
     Active Substance: DEFERASIROX
     Indication: IRON OVERLOAD
     Dosage: 1350 OT, QD
     Route: 048
     Dates: start: 201411

REACTIONS (6)
  - Blister [Unknown]
  - Blister rupture [Unknown]
  - Oral bacterial infection [Unknown]
  - Hypersensitivity [Unknown]
  - Acarodermatitis [Unknown]
  - Varicose vein [Unknown]
